FAERS Safety Report 21855059 (Version 1)
Quarter: 2023Q1

REPORT INFORMATION
  Report Type: Spontaneous
  Country: US (occurrence: US)
  Receive Date: 20230112
  Receipt Date: 20230112
  Transmission Date: 20230418
  Serious: No
  Sender: FDA-Public Use
  Company Number: US-PFIZER INC-PV202300006261

PATIENT
  Age: 38 Year
  Sex: Female

DRUGS (1)
  1. ZALEPLON [Suspect]
     Active Substance: ZALEPLON
     Dosage: UNK

REACTIONS (1)
  - Drug hypersensitivity [Unknown]
